FAERS Safety Report 13445303 (Version 2)
Quarter: 2017Q2

REPORT INFORMATION
  Report Type: Spontaneous
  Country: DE (occurrence: DE)
  Receive Date: 20170414
  Receipt Date: 20170504
  Transmission Date: 20170830
  Serious: Yes (Congenital Anomaly, Other)
  Sender: FDA-Public Use
  Company Number: DE-GILEAD-2017-0266911

PATIENT

DRUGS (2)
  1. VIRAMUNE [Concomitant]
     Active Substance: NEVIRAPINE
     Indication: HIV INFECTION
     Dosage: UNK
  2. DESCOVY [Suspect]
     Active Substance: EMTRICITABINE\TENOFOVIR ALAFENAMIDE FUMARATE
     Indication: HIV INFECTION
     Dosage: 1 DF, UNK
     Route: 064
     Dates: start: 20160616

REACTIONS (6)
  - Hypoplastic nasal cartilage [Unknown]
  - Cytogenetic abnormality [Unknown]
  - Trisomy 21 [Unknown]
  - Foetal exposure during pregnancy [Not Recovered/Not Resolved]
  - Cerebral ventricle dilatation [Unknown]
  - Ventricular septal defect [Unknown]

NARRATIVE: CASE EVENT DATE: 20160816
